FAERS Safety Report 15375772 (Version 2)
Quarter: 2018Q3

REPORT INFORMATION
  Report Type: Report from Study
  Country: SG (occurrence: SG)
  Receive Date: 20180912
  Receipt Date: 20180919
  Transmission Date: 20181010
  Serious: Yes (Life-Threatening, Hospitalization, Other)
  Sender: FDA-Public Use
  Company Number: SG-ASTRAZENECA-2018SF16151

PATIENT
  Age: 21743 Day
  Sex: Male
  Weight: 84 kg

DRUGS (1)
  1. DURVALUMAB. [Suspect]
     Active Substance: DURVALUMAB
     Indication: NON-SMALL CELL LUNG CANCER
     Route: 042
     Dates: start: 20180517, end: 20180628

REACTIONS (2)
  - Oesophageal perforation [Unknown]
  - Mediastinal abscess [Unknown]

NARRATIVE: CASE EVENT DATE: 20180713
